FAERS Safety Report 16941628 (Version 2)
Quarter: 2020Q1

REPORT INFORMATION
  Report Type: Spontaneous
  Country: GB (occurrence: GB)
  Receive Date: 20191021
  Receipt Date: 20200320
  Transmission Date: 20200409
  Serious: Yes (Death)
  Sender: FDA-Public Use
  Company Number: GB-MYLANLABS-2019M1098632

PATIENT
  Age: 23 Year
  Sex: Male
  Weight: 75 kg

DRUGS (5)
  1. LAMOTRIGINE. [Suspect]
     Active Substance: LAMOTRIGINE
     Dosage: 50MG NOCTE 4 DAYS
     Route: 048
     Dates: start: 20181125, end: 20181129
  2. LAMOTRIGINE. [Suspect]
     Active Substance: LAMOTRIGINE
     Indication: MOOD SWINGS
     Dosage: 25MG NOCTE 3 DAYS
     Route: 048
     Dates: start: 20181121, end: 20181124
  3. LAMOTRIGINE. [Suspect]
     Active Substance: LAMOTRIGINE
     Dosage: 200MG NOCTE 14 DAYS
     Route: 048
     Dates: start: 20181208
  4. LAMOTRIGINE. [Suspect]
     Active Substance: LAMOTRIGINE
     Dosage: 100MG NOCTE 7 DAYS
     Route: 048
     Dates: start: 20181130, end: 20181207
  5. LOFEPRAMINE HYDROCHLORIDE [Concomitant]
     Active Substance: LOFEPRAMINE HYDROCHLORIDE
     Dosage: 140 MILLIGRAM, QD
     Dates: start: 20180109, end: 20181214

REACTIONS (1)
  - Completed suicide [Fatal]

NARRATIVE: CASE EVENT DATE: 20181214
